FAERS Safety Report 4399392-1 (Version None)
Quarter: 2004Q3

REPORT INFORMATION
  Report Type: 
  Country: None (occurrence: None)
  Receive Date: 20040712
  Receipt Date: 20040707
  Transmission Date: 20050211
  Serious: Yes (Other)
  Sender: FDA-Public Use
  Company Number: C04-T-098

PATIENT
  Age: 78 Year
  Sex: Female
  Weight: 70.3075 kg

DRUGS (1)
  1. HYDROCODONE BITARTRATE [Suspect]
     Indication: BACK PAIN
     Dates: start: 20040529, end: 20040704

REACTIONS (1)
  - DRUG INEFFECTIVE [None]
